FAERS Safety Report 8001625-7 (Version None)
Quarter: 2011Q4

REPORT INFORMATION
  Report Type: 
  Country: None (occurrence: None)
  Receive Date: 20111222
  Receipt Date: 20070619
  Transmission Date: 20120403
  Serious: No
  Sender: FDA-Public Use
  Company Number: US-GLAXOSMITHKLINE-A0645005A

PATIENT
  Age: 31 Year
  Sex: Female

DRUGS (1)
  1. COMMIT [Suspect]
     Indication: EX-TOBACCO USER
     Dates: start: 20070326, end: 20070327

REACTIONS (2)
  - DYSPEPSIA [None]
  - PRODUCT QUALITY ISSUE [None]
